FAERS Safety Report 8014483-1 (Version None)
Quarter: 2011Q4

REPORT INFORMATION
  Report Type: 
  Country: None (occurrence: None)
  Receive Date: 20111229
  Receipt Date: 20111219
  Transmission Date: 20120403
  Serious: Yes (Hospitalization, Other)
  Sender: FDA-Public Use
  Company Number: PHHY2011GB104076

PATIENT
  Sex: Female

DRUGS (47)
  1. FUROSEMIDE [Suspect]
  2. DIPHENOXYLATE HCL + ATROPINE SULFATE [Suspect]
     Indication: DIARRHOEA
     Dosage: 2.5 MG, Q3H
     Route: 048
  3. ROSUVASTATIN [Suspect]
     Dosage: 10 MG/DAY
  4. SERTRALINE HYDROCHLORIDE [Suspect]
     Dosage: 25 MG/DAY
     Route: 048
  5. PHENOXYBENZAMINE [Suspect]
     Dosage: 10 MG, UNK
     Dates: start: 20090101
  6. VITAMIN D [Suspect]
     Dosage: 50000 IU (EVERY 7 DAYS)
     Route: 048
     Dates: start: 20090101
  7. ACETAMINOPHEN [Suspect]
     Indication: PAIN
     Dosage: 650 MG, Q4H (AS NEDDED)
     Dates: start: 20090101
  8. ACETAMINOPHEN [Suspect]
     Indication: PYREXIA
  9. DIGOXIN [Suspect]
     Dosage: 125 UG/DAY
     Route: 048
  10. DIGOXIN [Suspect]
     Dosage: 125 UG (EVERY OTHER DAY)
     Route: 048
  11. SACCHAROMYCES BOULARDII [Suspect]
     Dosage: 250 MG, BID
     Route: 048
     Dates: start: 20090101
  12. HALOPERIDOL [Suspect]
     Dosage: 2 MG, AT BED TIME
     Route: 048
  13. HALOPERIDOL [Suspect]
     Dosage: 0.5 MG, AT BED TIME
     Route: 048
  14. POTASSIUM CHLORIDE [Suspect]
     Dosage: 20 MEQ, BID
     Route: 048
     Dates: start: 20090701
  15. MEMANTINE HYDROCHLORIDE [Suspect]
     Dosage: 5 MG, BID
     Dates: start: 20090101
  16. AMLODIPINE [Suspect]
     Dosage: 10 MG, UNK
     Route: 048
  17. DICYCLOMINE HCL [Suspect]
     Dosage: 10 MG, QID
     Route: 048
     Dates: start: 20090501
  18. ESOMEPRAZOLE SODIUM [Suspect]
     Dosage: 20 MG, AT BREAKFAST
     Dates: start: 20090501
  19. POTASSIUM CHLORIDE [Suspect]
     Dosage: 20 DF, BID
     Route: 048
     Dates: start: 20090901
  20. OMEPRAZOLE [Concomitant]
     Dates: start: 20090501
  21. HYDROCODONE BITARTRATE + ACETAMINOPHEN [Suspect]
     Indication: PAIN
     Dosage: 1 DF, (EVERY 4-6 HOURS AS NEEDED)
     Route: 048
  22. LEVOTHYROXINE SODIUM [Suspect]
     Dosage: 50 UG, UNK
     Dates: start: 20090101
  23. LORAZEPAM [Suspect]
     Indication: SLEEP DISORDER
     Dosage: 0.5 MG, QD
     Route: 048
  24. METAXALONE [Suspect]
     Dosage: 400 MG, QID AS NEEDED
     Route: 048
  25. METOLAZONE [Suspect]
     Dosage: 0.5 DF, AS NEEDED
     Route: 048
     Dates: start: 20090101
  26. TERIPARATIDE [Suspect]
     Dosage: 20 UG/DAY
     Route: 058
     Dates: start: 20090101
  27. ACETYLSALICYLIC ACID SRT [Suspect]
     Dosage: 325 MG/DAY
     Route: 048
     Dates: start: 20090501
  28. EZETIMIBE [Suspect]
     Dosage: 10 MG, UNK
     Route: 048
  29. FENTANYL [Suspect]
     Dosage: 50 UG, UNK
     Dates: start: 20090101
  30. FENTANYL [Suspect]
     Dosage: 75 UG, UNK
  31. SALMETEROL/FLUTICASONE [Suspect]
     Dosage: 1 OT, BID (PUFF)
  32. HALOPERIDOL [Suspect]
     Dosage: 1 MG, AT BED TIME
     Route: 048
  33. METOPROLOL TARTRATE [Suspect]
     Dosage: 100 MG, QD
     Dates: start: 20090101
  34. SERTRALINE HYDROCHLORIDE [Suspect]
     Dosage: 50 MG/DAY
     Route: 048
  35. SUCRALFATE [Suspect]
     Dosage: 1 G, QID
     Route: 048
  36. ACETAMINOPHEN [Concomitant]
  37. SALMETEROL XINAFOATE [Suspect]
     Route: 054
     Dates: start: 20090513
  38. PSYLLIUM [Suspect]
     Dosage: 5.85 G, UNK
     Route: 048
     Dates: start: 20090101
  39. METOPROLOL SUCCINATE [Suspect]
     Dosage: 200 MG, QD
     Route: 048
  40. TERIPARATIDE [Suspect]
     Dosage: 20 UG (EVERY OTHER DAY)
     Route: 058
     Dates: start: 20090101
  41. VITAMIN D [Suspect]
     Dosage: 1000 IU/DAY
     Route: 048
     Dates: start: 20090101
  42. CALCIUM WITH VITAMIN D [Suspect]
     Dosage: 1 DF, UNK
     Route: 048
  43. CARISOPRODOL [Suspect]
     Dosage: 1 DF, Q6H
  44. ESOMEPRAZOLE SODIUM [Suspect]
     Dosage: 80 MG/DAY
     Route: 048
  45. LEVALBUTEROL HCL [Suspect]
     Dosage: 0.63 MG, Q6H
     Dates: start: 20090101
  46. MULTIVITAMINE [Suspect]
     Dosage: 1 DF/DAY
     Route: 048
  47. PREDNISONE TAB [Suspect]
     Dosage: 5 MG, EVERY OTHER DAY
     Route: 048

REACTIONS (18)
  - DECREASED APPETITE [None]
  - FATIGUE [None]
  - AGITATION [None]
  - HALLUCINATION, VISUAL [None]
  - MENTAL STATUS CHANGES [None]
  - CONSTIPATION [None]
  - PSEUDODEMENTIA [None]
  - DISORIENTATION [None]
  - DEHYDRATION [None]
  - INSOMNIA [None]
  - CONFUSIONAL STATE [None]
  - MEMORY IMPAIRMENT [None]
  - HAEMATOCRIT DECREASED [None]
  - PROTEIN TOTAL DECREASED [None]
  - DELIRIUM [None]
  - HAEMOGLOBIN DECREASED [None]
  - WEIGHT DECREASED [None]
  - VISUAL IMPAIRMENT [None]
